FAERS Safety Report 4705052-7 (Version None)
Quarter: 2005Q2

REPORT INFORMATION
  Report Type: 
  Country: None (occurrence: None)
  Receive Date: 20050629
  Receipt Date: 20050617
  Transmission Date: 20051028
  Serious: Yes (Other)
  Sender: FDA-Public Use
  Company Number: 142388USA

PATIENT
  Age: 70 Year
  Sex: Male

DRUGS (2)
  1. FLUDARA [Suspect]
     Indication: DISEASE PROGRESSION
     Dosage: 50 MILLIGRAM INTRAVENOUS (NOS)
     Route: 042
     Dates: start: 20030914, end: 20040130
  2. RITUXAN [Suspect]
     Indication: DISEASE PROGRESSION
     Dosage: 780 MILLIGRAM INTRAVENOUS (NOS)
     Route: 042
     Dates: start: 20030914, end: 20040130

REACTIONS (4)
  - ENCEPHALITIS VIRAL [None]
  - HEMIPARESIS [None]
  - PERFORMANCE STATUS DECREASED [None]
  - SKULL X-RAY ABNORMAL [None]
